FAERS Safety Report 5692815-7 (Version None)
Quarter: 2008Q2

REPORT INFORMATION
  Report Type: 
  Country: None (occurrence: None)
  Receive Date: 20080401
  Receipt Date: 20080315
  Transmission Date: 20081010
  Serious: Yes (Life-Threatening, Hospitalization)
  Sender: FDA-Public Use
  Company Number: ADE2008-0167

PATIENT
  Age: 68 Year
  Sex: Male
  Weight: 90 kg

DRUGS (5)
  1. METFORMIN HYDROCHLORIDE [Suspect]
     Indication: DIABETES MELLITUS
     Dosage: 1700 MG - DAILY - PO
     Route: 048
     Dates: end: 20080210
  2. GLIMEPIRIDE [Concomitant]
  3. GABAPENTIN [Concomitant]
  4. HUMALOG [Concomitant]
  5. VITAMIN B-12 [Concomitant]

REACTIONS (6)
  - CARDIAC ARREST [None]
  - DIARRHOEA [None]
  - HAEMODIALYSIS [None]
  - HYPERKALAEMIA [None]
  - LACTIC ACIDOSIS [None]
  - RENAL FAILURE ACUTE [None]
